FAERS Safety Report 7202798-6 (Version None)
Quarter: 2010Q4

REPORT INFORMATION
  Report Type: 
  Country: None (occurrence: None)
  Receive Date: 20101229
  Receipt Date: 20101112
  Transmission Date: 20110411
  Serious: No
  Sender: FDA-Public Use
  Company Number: US-BAUSCH-2010BL006445

PATIENT
  Age: 71 Year
  Sex: Male

DRUGS (4)
  1. BESIVANCE [Suspect]
     Indication: ANTIBIOTIC PROPHYLAXIS
     Route: 047
     Dates: start: 20101108, end: 20101110
  2. BESIVANCE [Suspect]
     Indication: OFF LABEL USE
     Route: 047
     Dates: start: 20101108, end: 20101110
  3. DICLOFENAC SODIUM [Suspect]
     Indication: PREOPERATIVE CARE
     Route: 047
     Dates: start: 20101108, end: 20101110
  4. FLOMAX [Concomitant]
     Indication: PROSTATE CANCER

REACTIONS (1)
  - HYPERSENSITIVITY [None]
